FAERS Safety Report 4668680-3 (Version None)
Quarter: 2005Q2

REPORT INFORMATION
  Report Type: 
  Country: None (occurrence: None)
  Receive Date: 20050523
  Receipt Date: 20050405
  Transmission Date: 20051028
  Serious: Yes (Other)
  Sender: FDA-Public Use
  Company Number: PHEH2005US04008

PATIENT
  Sex: Female

DRUGS (2)
  1. ZOLEDRONATE [Suspect]
     Indication: METASTASES TO BONE
  2. HORMONES AND RELATED AGENTS [Concomitant]

REACTIONS (1)
  - ASEPTIC NECROSIS BONE [None]
